FAERS Safety Report 20947691 (Version 1)
Quarter: 2022Q2

REPORT INFORMATION
  Report Type: Spontaneous
  Country: DE (occurrence: DE)
  Receive Date: 20220611
  Receipt Date: 20220611
  Transmission Date: 20220720
  Serious: Yes (Other)
  Sender: FDA-Public Use
  Company Number: DE-ROCHE-3087020

PATIENT
  Sex: Male
  Weight: 85 kg

DRUGS (11)
  1. CYCLOPHOSPHAMIDE\DOXORUBICIN\PREDNISONE\VINCRISTINE [Suspect]
     Active Substance: CYCLOPHOSPHAMIDE\DOXORUBICIN\PREDNISONE\VINCRISTINE
     Indication: Diffuse large B-cell lymphoma
     Dosage: 1ST LINE R-CHOP, 3 CYCLES ,DURATION : 47 DAYS
     Route: 065
     Dates: start: 20180407, end: 20180523
  2. CYCLOPHOSPHAMIDE\DOXORUBICIN\PREDNISONE\VINCRISTINE [Suspect]
     Active Substance: CYCLOPHOSPHAMIDE\DOXORUBICIN\PREDNISONE\VINCRISTINE
     Indication: Diffuse large B-cell lymphoma
     Dosage: 1ST LINE R-CHOP, 3 CYCLES ,  DURATION : 47 DAYS
     Route: 065
     Dates: start: 20180407, end: 20180523
  3. CYCLOPHOSPHAMIDE\DOXORUBICIN\PREDNISONE\VINCRISTINE [Suspect]
     Active Substance: CYCLOPHOSPHAMIDE\DOXORUBICIN\PREDNISONE\VINCRISTINE
     Indication: Diffuse large B-cell lymphoma
     Dosage: 1ST LINE R-CHOP, 3 CYCLES ,DURATION : 47 DAYS
     Route: 065
     Dates: start: 20180407, end: 20180523
  4. GEMFIBROZIL [Suspect]
     Active Substance: GEMFIBROZIL
     Indication: Diffuse large B-cell lymphoma
     Dosage: 2ND LINE, R-GEMOX, 80%, 5 CYCLES , DURATION : 6 MONTHS
     Route: 065
     Dates: start: 20180724, end: 201901
  5. GEMFIBROZIL [Suspect]
     Active Substance: GEMFIBROZIL
     Dosage: R-GEMOX, 1 CYCLE
     Route: 065
     Dates: start: 201904
  6. DIETARY SUPPLEMENT [Suspect]
     Active Substance: DIETARY SUPPLEMENT
     Indication: Diffuse large B-cell lymphoma
     Dosage: R-DHA, 1 CYCLE
     Route: 065
     Dates: start: 201903
  7. RITUXIMAB [Suspect]
     Active Substance: RITUXIMAB
     Indication: Diffuse large B-cell lymphoma
     Dosage: R-GEMOX, 1 CYCLE
     Route: 065
     Dates: start: 201904
  8. RITUXIMAB [Suspect]
     Active Substance: RITUXIMAB
     Indication: Diffuse large B-cell lymphoma
     Dosage: R-DHA, 1 CYCLE
     Route: 065
     Dates: start: 201903
  9. RITUXIMAB [Suspect]
     Active Substance: RITUXIMAB
     Dosage: 2ND LINE, R-GEMOX, 80%, 5 CYCLES
     Route: 065
     Dates: start: 20180724, end: 201901
  10. MABTHERA [Suspect]
     Active Substance: RITUXIMAB
     Indication: Diffuse large B-cell lymphoma
     Dosage: 1ST LINE R-CHOP, 3 CYCLES,DURATION : 47 DAYS
     Route: 065
     Dates: start: 20180407, end: 20180523
  11. CYCLOPHOSPHAMIDE\DOXORUBICIN\PREDNISONE\VINCRISTINE [Suspect]
     Active Substance: CYCLOPHOSPHAMIDE\DOXORUBICIN\PREDNISONE\VINCRISTINE
     Indication: Diffuse large B-cell lymphoma
     Dosage: 1ST LINE R-CHOP, 3 CYCLES ,DURATION : 47 DAYS
     Route: 065
     Dates: start: 20180407, end: 20180523

REACTIONS (5)
  - Disease progression [Unknown]
  - Pneumonia [Unknown]
  - Neuropathy peripheral [Unknown]
  - Nerve compression [Unknown]
  - Infection [Unknown]
